FAERS Safety Report 6273405-4 (Version None)
Quarter: 2009Q3

REPORT INFORMATION
  Report Type: 
  Country: None (occurrence: None)
  Receive Date: 20090720
  Receipt Date: 20090707
  Transmission Date: 20100115
  Serious: Yes (Hospitalization)
  Sender: FDA-Public Use
  Company Number: PHHY2009FR28164

PATIENT
  Sex: Female

DRUGS (8)
  1. LAMISIL [Suspect]
     Indication: FUNGAL SKIN INFECTION
     Dosage: 250 MG, QD
     Route: 048
     Dates: start: 20090330, end: 20090405
  2. FLUOXETINE [Concomitant]
  3. ALPRAZOLAM [Concomitant]
  4. MOPRAL [Concomitant]
  5. AERIUS [Concomitant]
  6. METEOSPASMYL [Concomitant]
  7. ALUMINUM HYDROXIDE AND MAGNESIUM TRISILICATE [Concomitant]
  8. LOVENOX [Concomitant]

REACTIONS (3)
  - CYTOLYTIC HEPATITIS [None]
  - FALL [None]
  - ORTHOSTATIC HYPOTENSION [None]
